FAERS Safety Report 12876429 (Version 2)
Quarter: 2017Q1

REPORT INFORMATION
  Report Type: Spontaneous
  Country: US (occurrence: US)
  Receive Date: 20161024
  Receipt Date: 20170116
  Transmission Date: 20170428
  Serious: No
  Sender: FDA-Public Use
  Company Number: US-LEO PHARMA-244417

PATIENT
  Age: 66 Year
  Sex: Male

DRUGS (7)
  1. PICATO [Suspect]
     Active Substance: INGENOL MEBUTATE
  2. PICATO [Suspect]
     Active Substance: INGENOL MEBUTATE
     Dates: start: 2015, end: 2015
  3. VACCINES [Concomitant]
     Active Substance: UNSPECIFIED INGREDIENT
     Indication: HERPES ZOSTER
  4. PICATO [Suspect]
     Active Substance: INGENOL MEBUTATE
  5. PICATO [Suspect]
     Active Substance: INGENOL MEBUTATE
     Dates: start: 2014, end: 2014
  6. PICATO [Suspect]
     Active Substance: INGENOL MEBUTATE
     Indication: PRECANCEROUS SKIN LESION
     Route: 061
     Dates: start: 20161016
  7. PICATO [Suspect]
     Active Substance: INGENOL MEBUTATE
     Indication: PRECANCEROUS SKIN LESION
     Route: 061
     Dates: start: 20161016

REACTIONS (6)
  - Asthenia [Recovered/Resolved]
  - Fatigue [Recovered/Resolved]
  - Drug administered at inappropriate site [Unknown]
  - Inappropriate schedule of drug administration [Unknown]
  - Malaise [Recovered/Resolved]
  - Lethargy [Recovered/Resolved]

NARRATIVE: CASE EVENT DATE: 20161016
